FAERS Safety Report 8389631 (Version 3)
Quarter: 2013Q2

REPORT INFORMATION
  Report Type: Spontaneous
  Country: US (occurrence: None)
  Receive Date: 20111221
  Receipt Date: 20121227
  Transmission Date: 20140414
  Serious: Yes (Hospitalization)
  Sender: FDA-Public Use
  Company Number: PHHY2010US48509

PATIENT
  Age: 29 Year
  Sex: Female
  Weight: 84.5 kg

DRUGS (5)
  1. EXJADE [Suspect]
     Indication: SICKLE CELL ANAEMIA
     Dosage: 1625 MG, QD, ORAL
     Route: 048
     Dates: start: 20110104, end: 20111230
  2. EXJADE [Suspect]
     Indication: SICKLE CELL ANAEMIA
     Dosage: 1625 MG, QD, ORAL
     Route: 048
     Dates: start: 20110104, end: 20111230
  3. FOLIC ACID (FOLIC ACID) TABLET [Concomitant]
  4. VICODIN (HYDROCODONE BITARTRATE, PARACETAMOL) TABLET [Concomitant]
  5. LISINOPRIL (LISINOPRIL) TABLET [Concomitant]

REACTIONS (1)
  - SICKLE CELL ANAEMIA WITH CRISIS [None]
